FAERS Safety Report 14769794 (Version 1)
Quarter: 2018Q2

REPORT INFORMATION
  Report Type: Spontaneous
  Country: BR (occurrence: BR)
  Receive Date: 20180417
  Receipt Date: 20180417
  Transmission Date: 20180711
  Serious: Yes (Hospitalization, Other)
  Sender: FDA-Public Use
  Company Number: BR-GLAXOSMITHKLINE-BR2018GSK064789

PATIENT
  Age: 56 Year
  Sex: Male
  Weight: 76 kg

DRUGS (2)
  1. COMBODART [Suspect]
     Active Substance: DUTASTERIDE\TAMSULOSIN
     Indication: PROSTATIC DISORDER
     Dosage: UNK UNK, QD
     Route: 048
  2. LUFTAL (DIMETHICONE) [Concomitant]
     Indication: PRODUCT USED FOR UNKNOWN INDICATION
     Dosage: UNK
     Route: 048

REACTIONS (13)
  - Impatience [Unknown]
  - Ill-defined disorder [Unknown]
  - Feeling hot [Unknown]
  - Condition aggravated [Unknown]
  - Depression [Unknown]
  - Retching [Unknown]
  - Anger [Unknown]
  - Mood altered [Unknown]
  - Restlessness [Unknown]
  - Hospitalisation [Recovered/Resolved]
  - Insomnia [Recovered/Resolved]
  - Anxiety [Unknown]
  - Memory impairment [Recovered/Resolved]

NARRATIVE: CASE EVENT DATE: 20180315
